FAERS Safety Report 21545086 (Version 1)
Quarter: 2022Q4

REPORT INFORMATION
  Report Type: Spontaneous
  Country: US (occurrence: US)
  Receive Date: 20221103
  Receipt Date: 20221103
  Transmission Date: 20230113
  Serious: No
  Sender: FDA-Public Use
  Company Number: US-BAUSCHBL-2022BNL001516

PATIENT
  Age: 62 Year
  Sex: Female

DRUGS (1)
  1. LOTEMAX SM [Suspect]
     Active Substance: LOTEPREDNOL ETABONATE
     Indication: Eye inflammation
     Route: 047
     Dates: start: 20201201, end: 20201215

REACTIONS (3)
  - Instillation site foreign body sensation [Recovering/Resolving]
  - Instillation site erythema [Recovering/Resolving]
  - Instillation site irritation [Recovering/Resolving]

NARRATIVE: CASE EVENT DATE: 20201201
